FAERS Safety Report 25072078 (Version 7)
Quarter: 2025Q2

REPORT INFORMATION
  Report Type: Spontaneous
  Country: US (occurrence: US)
  Receive Date: 20250313
  Receipt Date: 20250619
  Transmission Date: 20250717
  Serious: Yes (Hospitalization, Other)
  Sender: SANOFI AVENTIS
  Company Number: US-SA-2025SA073745

PATIENT
  Age: 37 Year
  Sex: Female
  Weight: 59.09 kg

DRUGS (1)
  1. DUPIXENT [Suspect]
     Active Substance: DUPILUMAB
     Indication: Asthma
     Dosage: 200 MG, QOW
     Route: 058
     Dates: start: 202011, end: 20250318

REACTIONS (15)
  - Pneumonia [Recovered/Resolved]
  - Mast cell activation syndrome [Unknown]
  - Erythema [Unknown]
  - Heart rate increased [Unknown]
  - Pulmonary eosinophilia [Unknown]
  - Dyspnoea [Recovered/Resolved]
  - Food allergy [Unknown]
  - Allergy to animal [Unknown]
  - Balance disorder [Unknown]
  - Dizziness [Unknown]
  - Asthma [Unknown]
  - Drug hypersensitivity [Unknown]
  - Rash [Recovered/Resolved]
  - Injection site pain [Unknown]
  - Maternal exposure during pregnancy [Unknown]

NARRATIVE: CASE EVENT DATE: 20240101
